FAERS Safety Report 23998286 (Version 3)
Quarter: 2024Q3

REPORT INFORMATION
  Report Type: Spontaneous
  Country: CA (occurrence: CA)
  Receive Date: 20240621
  Receipt Date: 20240821
  Transmission Date: 20241016
  Serious: Yes (Other)
  Sender: CELLTRION
  Company Number: CA-CELLTRION INC.-2024CA014842

PATIENT

DRUGS (4)
  1. INFLIXIMAB [Suspect]
     Active Substance: INFLIXIMAB
     Indication: Crohn^s disease
     Dosage: 240 MG, Q2WEEKS
     Route: 058
     Dates: start: 20240605
  2. INFLIXIMAB [Suspect]
     Active Substance: INFLIXIMAB
     Dosage: 240 MG, Q2WEEKS
     Route: 058
     Dates: start: 20240724
  3. INFLECTRA [Suspect]
     Active Substance: INFLIXIMAB-DYYB
     Indication: Crohn^s disease
     Dosage: UNK, EVERY 4 WEEKS
     Route: 042
     Dates: end: 20240330
  4. BENADRYL [Concomitant]
     Active Substance: DIPHENHYDRAMINE HYDROCHLORIDE
     Indication: Seasonal allergy

REACTIONS (6)
  - Haematochezia [Recovered/Resolved]
  - Abdominal tenderness [Unknown]
  - Stress [Recovered/Resolved]
  - Off label use [Unknown]
  - Therapy interrupted [Unknown]
  - Product use issue [Unknown]

NARRATIVE: CASE EVENT DATE: 20240605
